FAERS Safety Report 17555947 (Version 2)
Quarter: 2020Q1

REPORT INFORMATION
  Report Type: Spontaneous
  Country: US (occurrence: US)
  Receive Date: 20200318
  Receipt Date: 20200326
  Transmission Date: 20200409
  Serious: Yes (Hospitalization, Other)
  Sender: FDA-Public Use
  Company Number: US-009507513-2003USA005434

PATIENT
  Age: 59 Year
  Sex: Male

DRUGS (8)
  1. CRESTOR [Concomitant]
     Active Substance: ROSUVASTATIN CALCIUM
     Dosage: 10 MG DAILY
  2. ZETIA [Concomitant]
     Active Substance: EZETIMIBE
     Dosage: 10 MG DAILY
  3. LEXAPRO [Concomitant]
     Active Substance: ESCITALOPRAM OXALATE
  4. IBALIZUMAB [Concomitant]
     Active Substance: IBALIZUMAB
     Dosage: EVERY 2 WEEKS
     Route: 042
  5. TRICOR [Concomitant]
     Active Substance: FENOFIBRATE
     Dosage: 145 MG DAILY
  6. DELSTRIGO [Suspect]
     Active Substance: DORAVIRINE\LAMIVUDINE\TENOFOVIR DISOPROXIL FUMARATE
     Indication: HIV INFECTION
     Dosage: 100/300/300 MG
     Route: 048
     Dates: start: 2019, end: 202001
  7. TIVICAY [Concomitant]
     Active Substance: DOLUTEGRAVIR SODIUM
     Indication: HIV INFECTION
     Dosage: UNK
     Dates: start: 2019, end: 202001
  8. VALTREX [Concomitant]
     Active Substance: VALACYCLOVIR HYDROCHLORIDE

REACTIONS (1)
  - Pancreatitis acute [Recovered/Resolved]
